FAERS Safety Report 5499902-7 (Version None)
Quarter: 2007Q4

REPORT INFORMATION
  Report Type: 
  Country: None (occurrence: None)
  Receive Date: 20071026
  Receipt Date: 20071015
  Transmission Date: 20080405
  Serious: Yes (Other)
  Sender: FDA-Public Use
  Company Number: US-PFIZER INC-2007087390

PATIENT
  Sex: Male

DRUGS (5)
  1. CHANTIX [Suspect]
     Indication: SMOKING CESSATION THERAPY
     Dosage: TEXT:EVERY DAY
  2. PRAVASTATIN [Concomitant]
  3. ISOSORBIDE DINITRATE [Concomitant]
  4. NITROGLYCERIN [Concomitant]
     Route: 060
  5. PROPAFENONE HCL [Concomitant]

REACTIONS (1)
  - HAEMORRHAGE [None]
